FAERS Safety Report 8259798 (Version 7)
Quarter: 2012Q4

REPORT INFORMATION
  Report Type: 
  Country: US (occurrence: US)
  Receive Date: 20111122
  Receipt Date: 20121219
  Transmission Date: 20130627
  Serious: Yes (Hospitalization, Disabling, Other)
  Sender: FDA-Public Use
  Company Number: US-009507513-1111USA02615

PATIENT

DRUGS (4)
  1. FOSAMAX [Suspect]
     Indication: OSTEOPENIA
     Dosage: 70 mg, QW
     Route: 048
     Dates: start: 2000, end: 20101019
  2. HORMONES (UNSPECIFIED) [Concomitant]
     Dates: start: 1999, end: 2008
  3. FOSAMAX [Suspect]
     Indication: OSTEOPENIA
     Dosage: 70 mg, UNK
     Route: 048
  4. ALENDRONATE SODIUM [Suspect]
     Dosage: 70 mg, UNK
     Dates: start: 20080721

REACTIONS (64)
  - Femur fracture [Not Recovered/Not Resolved]
  - Lymphadenopathy [Unknown]
  - Angiopathy [Unknown]
  - Fall [Unknown]
  - Post procedural haemorrhage [Unknown]
  - Basal cell carcinoma [Unknown]
  - Skin disorder [Unknown]
  - Fracture delayed union [Unknown]
  - Hypertension [Unknown]
  - Hypercholesterolaemia [Unknown]
  - Asthma [Not Recovered/Not Resolved]
  - Intervertebral disc degeneration [Unknown]
  - Hiatus hernia [Unknown]
  - Fibrocystic breast disease [Unknown]
  - Blood glucose increased [Unknown]
  - Hypotension [Unknown]
  - Arthritis [Unknown]
  - Cyst [Recovered/Resolved]
  - Spondylolisthesis [Unknown]
  - Radiculitis [Unknown]
  - Plantar fasciitis [Unknown]
  - Impaired healing [Unknown]
  - Wound [Unknown]
  - Intervertebral disc protrusion [Unknown]
  - Osteoarthritis [Unknown]
  - Limb asymmetry [Unknown]
  - Chest discomfort [Unknown]
  - Blood potassium decreased [Unknown]
  - Dyspnoea [Unknown]
  - Heart rate irregular [Unknown]
  - Discomfort [Unknown]
  - Tooth loss [Unknown]
  - Dental necrosis [Unknown]
  - Gingival bleeding [Unknown]
  - Tooth deposit [Unknown]
  - Gingival recession [Unknown]
  - Tooth fracture [Unknown]
  - Toothache [Unknown]
  - Sinus disorder [Unknown]
  - Bone loss [Unknown]
  - Dental plaque [Unknown]
  - Device breakage [Unknown]
  - Leukoplakia oral [Unknown]
  - Tooth disorder [Unknown]
  - Gingivitis [Unknown]
  - Tooth abscess [Unknown]
  - Dental caries [Unknown]
  - Rheumatic fever [Unknown]
  - Chronic obstructive pulmonary disease [Unknown]
  - Sinusitis [Unknown]
  - Bronchitis [Unknown]
  - Irritable bowel syndrome [Unknown]
  - Varicose vein [Unknown]
  - Pneumonia [Unknown]
  - Peripheral vascular disorder [Unknown]
  - Glucose tolerance impaired [Unknown]
  - Seasonal allergy [Unknown]
  - Eye disorder [Unknown]
  - Vein disorder [Unknown]
  - Urinary tract infection [Unknown]
  - Breast disorder [Unknown]
  - Muscle spasms [Unknown]
  - Blood phosphorus decreased [Unknown]
  - Back pain [Unknown]
